FAERS Safety Report 23034075 (Version 2)
Quarter: 2023Q4

REPORT INFORMATION
  Report Type: Spontaneous
  Country: TR (occurrence: TR)
  Receive Date: 20231005
  Receipt Date: 20231018
  Transmission Date: 20240109
  Serious: Yes (Hospitalization)
  Sender: FDA-Public Use
  Company Number: TR-TEVA-2023-TR-2931592

PATIENT
  Age: 28 Year
  Sex: Female

DRUGS (5)
  1. RISPERIDONE [Suspect]
     Active Substance: RISPERIDONE
     Indication: Brief psychotic disorder, with postpartum onset
     Dosage: 1 MILLIGRAM DAILY; ONCE A DAY
     Route: 065
  2. METHYLERGONOVINE [Suspect]
     Active Substance: METHYLERGONOVINE
     Indication: Postpartum haemorrhage
     Route: 030
  3. METHYLERGONOVINE [Suspect]
     Active Substance: METHYLERGONOVINE
     Indication: Prophylaxis
  4. OLANZAPINE [Suspect]
     Active Substance: OLANZAPINE
     Indication: Brief psychotic disorder, with postpartum onset
     Dosage: 2.5 MILLIGRAM DAILY; ONCE A DAY
     Route: 065
  5. LORAZEPAM [Suspect]
     Active Substance: LORAZEPAM
     Indication: Brief psychotic disorder, with postpartum onset
     Dosage: 3 MILLIGRAM DAILY; 3 X 1 MG/DAY
     Route: 065

REACTIONS (5)
  - Reversible cerebral vasoconstriction syndrome [Recovered/Resolved]
  - Cerebrovascular disorder [Recovered/Resolved]
  - Cytotoxic lesions of corpus callosum [Recovered/Resolved]
  - Locked-in syndrome [Recovered/Resolved]
  - Drug ineffective [Unknown]
